FAERS Safety Report 14120991 (Version 1)
Quarter: 2017Q4

REPORT INFORMATION
  Report Type: Spontaneous
  Country: RS (occurrence: RS)
  Receive Date: 20171024
  Receipt Date: 20171024
  Transmission Date: 20180321
  Serious: Yes (Other)
  Sender: FDA-Public Use
  Company Number: RS-TEVA-816781ISR

PATIENT
  Age: 35 Year
  Sex: Female

DRUGS (3)
  1. ACTAWELL [Suspect]
     Active Substance: QUETIAPINE
     Indication: ANXIETY DISORDER
  2. ACTAWELL [Suspect]
     Active Substance: QUETIAPINE
     Indication: DEPRESSION
     Route: 048
     Dates: start: 201611, end: 201702
  3. RIVOTRIL [Concomitant]
     Active Substance: CLONAZEPAM
     Indication: ANXIETY DISORDER
     Route: 048

REACTIONS (2)
  - Bruxism [Not Recovered/Not Resolved]
  - Muscle spasms [Not Recovered/Not Resolved]

NARRATIVE: CASE EVENT DATE: 201612
